FAERS Safety Report 7720917-X (Version None)
Quarter: 2011Q3

REPORT INFORMATION
  Report Type: 
  Country: None (occurrence: None)
  Receive Date: 20110831
  Receipt Date: 20110824
  Transmission Date: 20111222
  Serious: Yes (Hospitalization, Other)
  Sender: FDA-Public Use
  Company Number: GXKR2011DE02641

PATIENT
  Sex: Male
  Weight: 3.95 kg

DRUGS (5)
  1. IODINE [Concomitant]
  2. NEBIVOLOL HCL [Concomitant]
     Dosage: MATERNAL DOSE: 2.5 MG/DAY
     Route: 064
  3. METOPROLOL TARTRATE [Suspect]
     Dosage: MATERNAL DOSE: 49.5 MG/DAY
     Route: 064
  4. FOLIC ACID [Concomitant]
     Dosage: MATERNAL DOSE: 0.4 MG/DAY
     Route: 064
  5. ACETAMINOPHEN [Concomitant]
     Dosage: MATERNAL DOSE: 500 MG; 4-5 PILLS/MONTH
     Route: 064

REACTIONS (3)
  - SUPRAVENTRICULAR TACHYCARDIA [None]
  - MATERNAL EXPOSURE DURING PREGNANCY [None]
  - PUPILS UNEQUAL [None]
